FAERS Safety Report 19992359 (Version 2)
Quarter: 2021Q4

REPORT INFORMATION
  Report Type: Spontaneous
  Country: US (occurrence: US)
  Receive Date: 20211025
  Receipt Date: 20211026
  Transmission Date: 20220303
  Serious: No
  Sender: FDA-Public Use
  Company Number: US-009507513-2109USA007474

PATIENT
  Age: 68 Year
  Sex: Female

DRUGS (2)
  1. PROVENTIL [Suspect]
     Active Substance: ALBUTEROL
     Dosage: 2 DOSAGE PUFF PRN
     Route: 055
  2. PROVENTIL [Suspect]
     Active Substance: ALBUTEROL
     Dosage: 2 PUFF, PRN
     Route: 055
     Dates: start: 20210928

REACTIONS (8)
  - Visual impairment [Unknown]
  - Adrenal disorder [Unknown]
  - Mobility decreased [Unknown]
  - Respiratory disorder [Unknown]
  - Product quality issue [Unknown]
  - Drug delivery system malfunction [Unknown]
  - Poor quality device used [Unknown]
  - Device malfunction [Unknown]

NARRATIVE: CASE EVENT DATE: 20210929
